FAERS Safety Report 15236992 (Version 3)
Quarter: 2018Q4

REPORT INFORMATION
  Report Type: Report from Study
  Country: JP (occurrence: JP)
  Receive Date: 20180803
  Receipt Date: 20181221
  Transmission Date: 20190204
  Serious: Yes (Other)
  Sender: FDA-Public Use
  Company Number: JP-OTSUKA-2016_024652

PATIENT
  Age: 60 Year
  Sex: Female
  Weight: 62.8 kg

DRUGS (12)
  1. TOLVAPTAN [Suspect]
     Active Substance: TOLVAPTAN
     Indication: CONGENITAL CYSTIC KIDNEY DISEASE
     Dosage: 60 MG, DAILY DOSE (DIVIDED INTO 2 DOSES)
     Route: 048
     Dates: start: 20151116, end: 20171120
  2. KREMEZIN [Concomitant]
     Active Substance: ACTIVATED CHARCOAL
     Indication: PRODUCT USED FOR UNKNOWN INDICATION
     Dosage: 6 G, DAILY DOSE
     Route: 048
     Dates: end: 20161114
  3. MIRCERA [Concomitant]
     Active Substance: METHOXY POLYETHYLENE GLYCOL-EPOETIN BETA
     Indication: PRODUCT USED FOR UNKNOWN INDICATION
     Dosage: 50 ?G, QD
     Route: 058
     Dates: start: 20170829, end: 20180123
  4. MIRCERA [Concomitant]
     Active Substance: METHOXY POLYETHYLENE GLYCOL-EPOETIN BETA
     Dosage: 250 ?G, QD
     Route: 058
     Dates: start: 20181120
  5. TOLVAPTAN [Suspect]
     Active Substance: TOLVAPTAN
     Dosage: 7.5 MG, QD
     Route: 048
     Dates: start: 20180123, end: 20180306
  6. ADALAT [Concomitant]
     Active Substance: NIFEDIPINE
     Indication: PRODUCT USED FOR UNKNOWN INDICATION
     Dosage: 20 MG, DAILY DOSE
     Route: 048
  7. MIRCERA [Concomitant]
     Active Substance: METHOXY POLYETHYLENE GLYCOL-EPOETIN BETA
     Dosage: 100 ?G, QD
     Route: 058
     Dates: start: 20180306, end: 20180417
  8. TOLVAPTAN [Suspect]
     Active Substance: TOLVAPTAN
     Dosage: 30 MG, QD
     Route: 048
     Dates: start: 20171121, end: 20171218
  9. TOLVAPTAN [Suspect]
     Active Substance: TOLVAPTAN
     Dosage: 15 MG, QD
     Route: 048
     Dates: start: 20171219, end: 20180122
  10. FEBURIC [Concomitant]
     Active Substance: FEBUXOSTAT
     Indication: PRODUCT USED FOR UNKNOWN INDICATION
     Dosage: 10 MG, DAILY DOSE
     Route: 048
  11. DIOVAN [Concomitant]
     Active Substance: VALSARTAN
     Indication: PRODUCT USED FOR UNKNOWN INDICATION
     Dosage: 120 MG, DAILY DOSE
     Route: 048
  12. MIRCERA [Concomitant]
     Active Substance: METHOXY POLYETHYLENE GLYCOL-EPOETIN BETA
     Dosage: 150 ?G, QD
     Route: 058
     Dates: start: 20180529, end: 20181009

REACTIONS (4)
  - Glomerular filtration rate decreased [Unknown]
  - Dehydration [Recovering/Resolving]
  - Inappropriate schedule of product administration [Unknown]
  - Renal impairment [Recovering/Resolving]

NARRATIVE: CASE EVENT DATE: 20151222
